FAERS Safety Report 6710439-7 (Version None)
Quarter: 2010Q2

REPORT INFORMATION
  Report Type: 
  Country: None (occurrence: None)
  Receive Date: 20100504
  Receipt Date: 20100422
  Transmission Date: 20101027
  Serious: Yes (Other)
  Sender: FDA-Public Use
  Company Number: PHHY2010US26169

PATIENT
  Sex: Female

DRUGS (12)
  1. RECLAST [Suspect]
     Dosage: UNK,UNK
     Dates: start: 20090401
  2. ENABLEX [Concomitant]
     Dosage: 15 MG, UNK
  3. MESTINON [Concomitant]
     Indication: MYASTHENIA GRAVIS
     Dosage: 60 MG, BID
  4. METOPROLOL [Concomitant]
     Dosage: 25 MG, UNK
  5. TRILIPIX [Concomitant]
     Dosage: 135 MG, QD
  6. FEXOFENADINE [Concomitant]
     Dosage: UNK,UNK
  7. PRAVASTATIN [Concomitant]
     Dosage: 120 MG, QD
  8. VITAMIN B-12 [Concomitant]
     Dosage: ONCE A MONTH
  9. VITAMIN C [Concomitant]
     Dosage: 1000 MG ,UNK
  10. VITAMIN D [Concomitant]
     Dosage: 800 MG, BID
  11. ESTROVEN [Concomitant]
     Dosage: UNK,UNK
  12. FOLIC ACID [Concomitant]
     Dosage: UNK,UNK

REACTIONS (3)
  - BLADDER DISORDER [None]
  - MEMORY IMPAIRMENT [None]
  - SPINAL NERVE STIMULATOR IMPLANTATION [None]
